FAERS Safety Report 6575247-9 (Version None)
Quarter: 2010Q1

REPORT INFORMATION
  Report Type: 
  Country: None (occurrence: None)
  Receive Date: 20100209
  Receipt Date: 20100129
  Transmission Date: 20100710
  Serious: Yes (Other)
  Sender: FDA-Public Use
  Company Number: US-ROCHE-519559

PATIENT
  Sex: Male
  Weight: 3 kg

DRUGS (4)
  1. COPEGUS [Suspect]
     Indication: HEPATITIS C
     Route: 064
     Dates: start: 20070201, end: 20070829
  2. PEG-INTRON [Suspect]
     Indication: HEPATITIS C
     Route: 064
     Dates: start: 20070201, end: 20070829
  3. IRON NOS [Concomitant]
     Dates: start: 20070829
  4. FERROUS SULFATE TAB [Concomitant]
     Dates: start: 20070829

REACTIONS (1)
  - DEAFNESS [None]
